FAERS Safety Report 17657141 (Version 1)
Quarter: 2020Q2

REPORT INFORMATION
  Report Type: Report from Study
  Country: MX (occurrence: MX)
  Receive Date: 20200410
  Receipt Date: 20200410
  Transmission Date: 20200713
  Serious: Yes (Death, Other)
  Sender: FDA-Public Use
  Company Number: MX-DSJP-DSU-2020-111403

PATIENT

DRUGS (1)
  1. OLMESARTAN-HCTZ [Suspect]
     Active Substance: HYDROCHLOROTHIAZIDE\OLMESARTAN MEDOXOMIL
     Indication: CARDIAC DISORDER
     Dosage: UNK
     Route: 048

REACTIONS (4)
  - Blood cholesterol abnormal [Unknown]
  - Renal disorder [Unknown]
  - Myocardial infarction [Fatal]
  - Blood triglycerides abnormal [Unknown]

NARRATIVE: CASE EVENT DATE: 201906
